FAERS Safety Report 9846805 (Version 1)
Quarter: 2014Q1

REPORT INFORMATION
  Report Type: Spontaneous
  Country: GT (occurrence: GT)
  Receive Date: 20140127
  Receipt Date: 20140127
  Transmission Date: 20141002
  Serious: Yes (Other)
  Sender: FDA-Public Use
  Company Number: PHHY2014GT006399

PATIENT
  Sex: 0

DRUGS (1)
  1. METFORMIN [Suspect]
     Route: 064

REACTIONS (4)
  - Premature baby [Unknown]
  - Foetal growth restriction [Unknown]
  - Foetal distress syndrome [Unknown]
  - Foetal exposure during pregnancy [Unknown]
